FAERS Safety Report 22333478 (Version 1)
Quarter: 2023Q2

REPORT INFORMATION
  Report Type: Spontaneous
  Country: US (occurrence: None)
  Receive Date: 20230516
  Receipt Date: 20230516
  Transmission Date: 20230721
  Serious: Yes (Disabling, Other)
  Sender: FDA-Public Use
  Company Number: None

PATIENT
  Age: 52 Year
  Sex: Male
  Weight: 98.88 kg

DRUGS (7)
  1. INGREZZA [Suspect]
     Active Substance: VALBENAZINE
     Dates: start: 20230417, end: 20230418
  2. QUETIAPINE [Concomitant]
     Active Substance: QUETIAPINE
     Dosage: FREQUENCY : AT BEDTIME;?
  3. ALPRAZOLAM [Concomitant]
     Active Substance: ALPRAZOLAM
     Dosage: FREQUENCY : TWICE A DAY;?
  4. TRAZODONE [Concomitant]
     Active Substance: TRAZODONE HYDROCHLORIDE
     Dosage: FREQUENCY : AT BEDTIME;?
  5. LISINOPRIL [Concomitant]
     Active Substance: LISINOPRIL
  6. AMLODIPINE BESYLATE [Concomitant]
     Active Substance: AMLODIPINE BESYLATE
  7. LEVOTHYROXINE [Concomitant]
     Active Substance: LEVOTHYROXINE

REACTIONS (3)
  - Visual impairment [None]
  - Photopsia [None]
  - Therapy cessation [None]

NARRATIVE: CASE EVENT DATE: 20230418
